FAERS Safety Report 9261662 (Version 1)
Quarter: 2013Q2

REPORT INFORMATION
  Report Type: Spontaneous
  Country: FR (occurrence: FR)
  Receive Date: 20130429
  Receipt Date: 20130429
  Transmission Date: 20140414
  Serious: Yes (Other)
  Sender: FDA-Public Use
  Company Number: FR-PFIZER INC-2013126230

PATIENT
  Age: 66 Year
  Sex: Female

DRUGS (6)
  1. FLUOROURACILE PFIZER [Suspect]
     Indication: ADENOCARCINOMA
     Dosage: UNK
     Route: 042
     Dates: start: 20121130
  2. CALCIUM LEVOFOLINATE WINTHROP [Suspect]
     Indication: ADENOCARCINOMA
     Dosage: 200 MG/M2, UNK
     Route: 042
     Dates: start: 20121130, end: 20130301
  3. OXALIPLATIN TEVA [Suspect]
     Indication: ADENOCARCINOMA
     Dosage: 85 MG/M2, UNK
     Route: 042
     Dates: start: 20121130, end: 20130301
  4. ONDANSETRON HYDROCHLORIDE [Concomitant]
     Dosage: UNK
     Route: 042
     Dates: start: 20121130
  5. METHYLPREDNISOLONE [Concomitant]
     Dosage: UNK
     Dates: start: 20121130
  6. ATENOLOL [Concomitant]
     Dosage: 0.5 DF, 1X/DAY

REACTIONS (5)
  - Dysgeusia [Unknown]
  - Neutropenia [Not Recovered/Not Resolved]
  - Alopecia [Not Recovered/Not Resolved]
  - Paraesthesia [Unknown]
  - Nausea [Recovered/Resolved]
